FAERS Safety Report 16578261 (Version 1)
Quarter: 2019Q3

REPORT INFORMATION
  Report Type: Spontaneous
  Country: ES (occurrence: ES)
  Receive Date: 20190716
  Receipt Date: 20190716
  Transmission Date: 20191004
  Serious: Yes (Death)
  Sender: FDA-Public Use
  Company Number: ES-PFIZER INC-2019304428

PATIENT
  Age: 92 Year
  Sex: Female

DRUGS (4)
  1. COZAAR INICIO [Suspect]
     Active Substance: LOSARTAN POTASSIUM
     Indication: CARDIAC FAILURE
     Dosage: 12.5 MG, 1X/DAY
     Route: 048
     Dates: start: 20170711, end: 20190610
  2. FUROSEMIDE. [Suspect]
     Active Substance: FUROSEMIDE
     Indication: CARDIAC FAILURE
     Dosage: 80 MG, 1X/DAY (ONE TABLET DURING BREAKFACT AND ONE TABLET DURING DINNER)
     Route: 048
     Dates: start: 20150616, end: 20190620
  3. ALDACTONE [Suspect]
     Active Substance: SPIRONOLACTONE
     Indication: CARDIAC FAILURE
     Dosage: 25 MG, 1X/DAY
     Route: 048
     Dates: start: 20180724, end: 20190610
  4. HIGROTON [Suspect]
     Active Substance: CHLORTHALIDONE
     Indication: HYPERTENSION
     Dosage: 100 MG, WEEKLY (TABLET DURING THE AFTERNOON SNACK ONLY ON MONDAY AND THURSDAY)
     Route: 048
     Dates: start: 20190506, end: 20190610

REACTIONS (2)
  - Dehydration [Fatal]
  - Hyponatraemia [Fatal]

NARRATIVE: CASE EVENT DATE: 20190610
